FAERS Safety Report 16363805 (Version 1)
Quarter: 2019Q2

REPORT INFORMATION
  Report Type: Spontaneous
  Country: ES (occurrence: ES)
  Receive Date: 20190528
  Receipt Date: 20190528
  Transmission Date: 20190711
  Serious: Yes (Other)
  Sender: FDA-Public Use
  Company Number: PHHY2019ES119174

PATIENT
  Age: 72 Year
  Sex: Female

DRUGS (2)
  1. METHYLPREDNISOLONE. [Concomitant]
     Active Substance: METHYLPREDNISOLONE
     Indication: POLYMYALGIA RHEUMATICA
     Dosage: 5 MG, QD
     Route: 065
  2. METHOTREXATE. [Suspect]
     Active Substance: METHOTREXATE
     Indication: POLYMYALGIA RHEUMATICA
     Dosage: 20 MG, QW
     Route: 065

REACTIONS (11)
  - Asthenia [Recovering/Resolving]
  - Abdominal pain upper [Recovering/Resolving]
  - Myalgia [Unknown]
  - Product use in unapproved indication [Unknown]
  - Vomiting [Recovering/Resolving]
  - Condition aggravated [Unknown]
  - Decreased appetite [Recovering/Resolving]
  - Cytomegalovirus gastritis [Recovering/Resolving]
  - Food intolerance [Recovering/Resolving]
  - Cytomegalovirus gastrointestinal ulcer [Recovering/Resolving]
  - Abdominal distension [Recovering/Resolving]
